FAERS Safety Report 11990527 (Version 2)
Quarter: 2016Q3

REPORT INFORMATION
  Report Type: Report from Study
  Country: PL (occurrence: PL)
  Receive Date: 20160202
  Receipt Date: 20160808
  Transmission Date: 20161109
  Serious: Yes (Life-Threatening, Other)
  Sender: FDA-Public Use
  Company Number: PL-GLAXOSMITHKLINE-PL2016013318

PATIENT
  Age: 32 Year
  Sex: Female

DRUGS (4)
  1. RETIGABINE [Suspect]
     Active Substance: EZOGABINE
     Indication: PARTIAL SEIZURES
     Dosage: 600 MG, TID
     Dates: start: 20121127, end: 20140324
  2. TARDYFERON [Concomitant]
     Active Substance: FERROUS SULFATE
     Indication: SUPPLEMENTATION THERAPY
     Route: 048
     Dates: start: 20151228
  3. RETIGABINE [Suspect]
     Active Substance: EZOGABINE
     Dosage: 200 MG, TID
     Dates: start: 20140401, end: 20140406
  4. RETIGABINE [Suspect]
     Active Substance: EZOGABINE
     Dosage: 400 MG, TID
     Dates: start: 20140325, end: 20140331

REACTIONS (1)
  - Breast cancer [Not Recovered/Not Resolved]

NARRATIVE: CASE EVENT DATE: 20151123
